FAERS Safety Report 8456307-4 (Version None)
Quarter: 2012Q2

REPORT INFORMATION
  Report Type: 
  Country: None (occurrence: None)
  Receive Date: 20120621
  Receipt Date: 20120612
  Transmission Date: 20120825
  Serious: Yes (Hospitalization)
  Sender: FDA-Public Use
  Company Number: US-ASTRAZENECA-2012SE19236

PATIENT
  Age: 28 Year
  Sex: Male
  Weight: 106.6 kg

DRUGS (16)
  1. SEROQUEL [Suspect]
     Indication: BIPOLAR DISORDER
     Route: 048
  2. SEROQUEL [Suspect]
     Route: 048
  3. SEROQUEL [Suspect]
     Route: 048
  4. WELLBUTRIN [Suspect]
     Route: 065
  5. SEROQUEL [Suspect]
     Route: 048
  6. SEROQUEL [Suspect]
     Route: 048
  7. SEROQUEL [Suspect]
     Dosage: HALF OF 300 MG
     Route: 048
  8. SEROQUEL [Suspect]
     Route: 048
  9. SEROQUEL [Suspect]
     Route: 048
  10. CITALOPRAM HYDROBROMIDE [Suspect]
     Route: 065
  11. SEROQUEL [Suspect]
     Route: 048
  12. SEROQUEL [Suspect]
     Indication: DEPRESSION
     Route: 048
  13. SEROQUEL [Suspect]
     Route: 048
  14. SEROQUEL [Suspect]
     Dosage: HALF OF 300 MG
     Route: 048
  15. SEROQUEL [Suspect]
     Route: 048
  16. SEROQUEL [Suspect]
     Route: 048

REACTIONS (8)
  - TREMOR [None]
  - PSYCHOMOTOR HYPERACTIVITY [None]
  - SOMNOLENCE [None]
  - ANXIETY [None]
  - PNEUMONIA ASPIRATION [None]
  - FATIGUE [None]
  - INTENTIONAL DRUG MISUSE [None]
  - ADVERSE DRUG REACTION [None]
